FAERS Safety Report 5566940-5 (Version None)
Quarter: 2007Q4

REPORT INFORMATION
  Report Type: 
  Country: None (occurrence: None)
  Receive Date: 20071219
  Receipt Date: 20070604
  Transmission Date: 20080405
  Serious: No
  Sender: FDA-Public Use
  Company Number: US-BRISTOL-MYERS SQUIBB COMPANY-13757182

PATIENT
  Age: 75 Year
  Sex: Female
  Weight: 52 kg

DRUGS (2)
  1. PRAVACHOL [Suspect]
     Indication: ARTERIOSCLEROSIS
     Dates: start: 20020101
  2. LOTREL [Concomitant]

REACTIONS (5)
  - DIZZINESS [None]
  - DYSKINESIA [None]
  - MUSCULAR WEAKNESS [None]
  - MYALGIA [None]
  - NERVOUSNESS [None]
